FAERS Safety Report 13119900 (Version 2)
Quarter: 2017Q1

REPORT INFORMATION
  Report Type: Report from Study
  Country: None (occurrence: US)
  Receive Date: 20170117
  Receipt Date: 20170118
  Transmission Date: 20170428
  Serious: Yes (Other)
  Sender: FDA-Public Use
  Company Number: US-ABBVIE-16K-163-1775294-00

PATIENT
  Age: 59 Year
  Sex: Female

DRUGS (2)
  1. HUMIRA [Suspect]
     Active Substance: ADALIMUMAB
     Indication: CROHN^S DISEASE
     Route: 058
     Dates: start: 201310, end: 201607
  2. HUMIRA [Suspect]
     Active Substance: ADALIMUMAB
     Route: 058
     Dates: start: 201609, end: 201612

REACTIONS (12)
  - Myocardial infarction [Unknown]
  - Cardiac disorder [Unknown]
  - Palpitations [Recovered/Resolved]
  - Retinal detachment [Unknown]
  - Myocardial infarction [Unknown]
  - Photopsia [Unknown]
  - Diarrhoea [Unknown]
  - Visual impairment [Unknown]
  - Constipation [Unknown]
  - Abdominal pain upper [Unknown]
  - Insomnia [Unknown]
  - Eye abscess [Unknown]

NARRATIVE: CASE EVENT DATE: 201401
